FAERS Safety Report 4353344-6 (Version None)
Quarter: 2004Q2

REPORT INFORMATION
  Report Type: 
  Country: None (occurrence: None)
  Receive Date: 20040428
  Receipt Date: 20040113
  Transmission Date: 20050107
  Serious: Yes (Other)
  Sender: FDA-Public Use
  Company Number: 2250051-2004-00019

PATIENT
  Sex: Female

DRUGS (2)
  1. RHOGAM [Suspect]
     Dosage: 300 UG/ANTENATAL
     Dates: start: 20010209
  2. RHOGAM [Suspect]
     Dosage: 300 UG / POSTPARTUML
     Dates: start: 20010406

REACTIONS (1)
  - HUMAN T-CELL LYMPHOTROPIC VIRUS TYPE I INFECTION [None]
